FAERS Safety Report 20925457 (Version 1)
Quarter: 2022Q2

REPORT INFORMATION
  Report Type: Spontaneous
  Country: US (occurrence: US)
  Receive Date: 20220607
  Receipt Date: 20220607
  Transmission Date: 20220720
  Serious: Yes (Other)
  Sender: FDA-Public Use
  Company Number: US-PFIZER INC-202200800270

PATIENT

DRUGS (1)
  1. PAXLOVID [Interacting]
     Active Substance: NIRMATRELVIR\RITONAVIR
     Indication: COVID-19 treatment
     Dosage: UNK, 2X/DAY (BEEN ON PAXLOVID FOR 2 DAYS AFTER TAKING 4 DOSES (2 DOSE MORNING AND EVENING)

REACTIONS (3)
  - Atrial fibrillation [Not Recovered/Not Resolved]
  - Drug interaction [Not Recovered/Not Resolved]
  - Heart rate irregular [Not Recovered/Not Resolved]
